FAERS Safety Report 8344228-7 (Version None)
Quarter: 2012Q2

REPORT INFORMATION
  Report Type: 
  Country: None (occurrence: None)
  Receive Date: 20120402
  Receipt Date: 20110317
  Transmission Date: 20120825
  Serious: Yes (Hospitalization, Other)
  Sender: FDA-Public Use
  Company Number: 250645USA

PATIENT
  Sex: Male

DRUGS (1)
  1. CAPTOPRIL [Suspect]
     Dosage: (50 MG)

REACTIONS (2)
  - DYSPNOEA [None]
  - ANGIOEDEMA [None]
